FAERS Safety Report 12376334 (Version 1)
Quarter: 2016Q2

REPORT INFORMATION
  Report Type: Spontaneous
  Country: US (occurrence: None)
  Receive Date: 20160516
  Receipt Date: 20160516
  Transmission Date: 20160815
  Serious: No
  Sender: FDA-Public Use
  Company Number: None

PATIENT
  Age: 59 Year
  Sex: Female

DRUGS (1)
  1. IBRANCE [Suspect]
     Active Substance: PALBOCICLIB
     Dosage: 125MG DAILY 21 DAYS ON, 7 DAYS OFF ORALLY
     Route: 048
     Dates: start: 20150903, end: 20160418

REACTIONS (4)
  - Drug ineffective [None]
  - Rhinorrhoea [None]
  - Lacrimation increased [None]
  - Dizziness [None]

NARRATIVE: CASE EVENT DATE: 20151221
